FAERS Safety Report 25566378 (Version 1)
Quarter: 2025Q3

REPORT INFORMATION
  Report Type: Spontaneous
  Country: US (occurrence: None)
  Receive Date: 20250714
  Receipt Date: 20250714
  Transmission Date: 20251020
  Serious: No
  Sender: FDA-CTU
  Company Number: None

PATIENT

DRUGS (4)
  1. POLYETHYLENE GLYCOL [Suspect]
     Active Substance: POLYETHYLENE GLYCOL
  2. DOCUSATE [Suspect]
     Active Substance: DOCUSATE
  3. SENNA [Suspect]
     Active Substance: SENNOSIDES
  4. TRULANCE [Suspect]
     Active Substance: PLECANATIDE

REACTIONS (2)
  - Therapy non-responder [None]
  - Nausea [None]
